FAERS Safety Report 6097222-3 (Version None)
Quarter: 2009Q1

REPORT INFORMATION
  Report Type: 
  Country: None (occurrence: None)
  Receive Date: 20090227
  Receipt Date: 20090224
  Transmission Date: 20090719
  Serious: Yes (Hospitalization)
  Sender: FDA-Public Use
  Company Number: B0558219A

PATIENT
  Age: 82 Year
  Sex: Female

DRUGS (4)
  1. ZOVIRAX [Suspect]
     Indication: HERPES ZOSTER
     Dosage: 125MG PER DAY
     Route: 042
     Dates: start: 20090202, end: 20090202
  2. ZOVIRAX [Suspect]
     Dosage: 83MG PER DAY
     Route: 042
     Dates: start: 20090204, end: 20090204
  3. DORAL [Concomitant]
     Indication: INSOMNIA
     Dosage: 15MG PER DAY
     Route: 048
     Dates: start: 20090203
  4. DEPAS [Concomitant]
     Indication: INSOMNIA
     Dosage: 1MG PER DAY
     Route: 048
     Dates: start: 20090203

REACTIONS (3)
  - ABNORMAL BEHAVIOUR [None]
  - ENCEPHALOPATHY [None]
  - SPEECH DISORDER [None]
